FAERS Safety Report 8756362 (Version 1)
Quarter: 2012Q4

REPORT INFORMATION
  Report Type: 
  Country: US (occurrence: US)
  Receive Date: 20120828
  Receipt Date: 20120828
  Transmission Date: 20130627
  Serious: Yes (Hospitalization)
  Sender: FDA-Public Use
  Company Number: US-SANOFI-AVENTIS-2012SA059382

PATIENT
  Age: 47 Year
  Sex: Male

DRUGS (3)
  1. LANTUS [Suspect]
     Dosage: Dose:22 unit(s)
     Route: 058
     Dates: start: 201206
  2. SOLOSTAR [Suspect]
     Dates: start: 201206
  3. ALL OTHER THERAPEUTIC PRODUCTS [Concomitant]

REACTIONS (2)
  - Hospitalisation [Unknown]
  - Drug dose omission [Unknown]
